FAERS Safety Report 25833638 (Version 2)
Quarter: 2025Q4

REPORT INFORMATION
  Report Type: Report from Study
  Country: US (occurrence: US)
  Receive Date: 20250922
  Receipt Date: 20251117
  Transmission Date: 20260118
  Serious: Yes (Disabling, Other)
  Sender: ABBVIE
  Company Number: US-ABBVIE-6466806

PATIENT
  Age: 58 Year
  Sex: Female

DRUGS (3)
  1. CREON [Suspect]
     Active Substance: PANCRELIPASE AMYLASE\PANCRELIPASE LIPASE\PANCRELIPASE PROTEASE
     Indication: Pancreatic failure
     Dosage: 24000 UNITS
     Route: 048
     Dates: start: 2023
  2. CREON [Suspect]
     Active Substance: PANCRELIPASE AMYLASE\PANCRELIPASE LIPASE\PANCRELIPASE PROTEASE
     Indication: Pancreatic failure
     Dosage: 36000 UNITS
     Route: 048
  3. CREON [Suspect]
     Active Substance: PANCRELIPASE AMYLASE\PANCRELIPASE LIPASE\PANCRELIPASE PROTEASE
     Indication: Pancreatic failure
     Route: 048
     Dates: start: 20241201

REACTIONS (6)
  - Pancreatic failure [Recovering/Resolving]
  - Impaired gastric emptying [Not Recovered/Not Resolved]
  - Drug ineffective [Recovering/Resolving]
  - Illness [Not Recovered/Not Resolved]
  - Steatorrhoea [Unknown]
  - Incontinence [Unknown]

NARRATIVE: CASE EVENT DATE: 20241201
